FAERS Safety Report 6081430-1 (Version None)
Quarter: 2009Q1

REPORT INFORMATION
  Report Type: 
  Country: None (occurrence: None)
  Receive Date: 20090218
  Receipt Date: 20090211
  Transmission Date: 20090719
  Serious: Yes (Life-Threatening)
  Sender: FDA-Public Use
  Company Number: IT-CELGENEUS-083-21880-09010200

PATIENT
  Sex: Female

DRUGS (11)
  1. REVLIMID [Suspect]
     Indication: MULTIPLE MYELOMA
     Route: 048
     Dates: start: 20081127, end: 20081203
  2. REVLIMID [Suspect]
     Route: 048
     Dates: start: 20081215, end: 20081228
  3. REVLIMID [Suspect]
     Route: 048
     Dates: start: 20090112
  4. REVLIMID [Suspect]
     Route: 048
     Dates: start: 20081217, end: 20081227
  5. REVLIMID [Suspect]
     Route: 048
     Dates: start: 20090112
  6. OMEPRAZOLE [Concomitant]
     Indication: DRUG USE FOR UNKNOWN INDICATION
     Route: 065
  7. LUMINAL [Concomitant]
     Indication: DRUG USE FOR UNKNOWN INDICATION
     Route: 065
  8. DURAGESIC-100 [Concomitant]
     Indication: DRUG USE FOR UNKNOWN INDICATION
     Route: 065
  9. PIPERACILLINE [Concomitant]
     Indication: DRUG USE FOR UNKNOWN INDICATION
     Route: 065
     Dates: start: 20081217, end: 20090111
  10. TAZOBACTAM [Concomitant]
     Indication: DRUG USE FOR UNKNOWN INDICATION
     Route: 065
     Dates: start: 20081217, end: 20090111
  11. TEICOPLANIN [Concomitant]
     Indication: DRUG USE FOR UNKNOWN INDICATION
     Route: 065
     Dates: start: 20081217, end: 20090111

REACTIONS (6)
  - ACUTE RESPIRATORY FAILURE [None]
  - HAEMOGLOBIN DECREASED [None]
  - PLATELET COUNT DECREASED [None]
  - PNEUMONIA [None]
  - RESPIRATORY DISTRESS [None]
  - WHITE BLOOD CELL COUNT DECREASED [None]
